FAERS Safety Report 23371292 (Version 2)
Quarter: 2024Q1

REPORT INFORMATION
  Report Type: Report from Study
  Country: CN (occurrence: CN)
  Receive Date: 20240105
  Receipt Date: 20240117
  Transmission Date: 20240410
  Serious: No
  Sender: FDA-Public Use
  Company Number: CN-PFIZER INC-PV202300210424

PATIENT
  Age: 70 Year
  Sex: Male

DRUGS (25)
  1. NIRMATRELVIR\RITONAVIR [Suspect]
     Active Substance: NIRMATRELVIR\RITONAVIR
     Indication: COVID-19
     Dosage: [NIRMATRELVIR 300 MG]/[RITONAVIR 100 MG], BID
     Route: 048
     Dates: start: 20220522, end: 20220527
  2. NIRMATRELVIR\RITONAVIR [Suspect]
     Active Substance: NIRMATRELVIR\RITONAVIR
     Dosage: [NIRMATRELVIR 300 MG]/[RITONAVIR 100 MG], BID
     Route: 048
     Dates: start: 20220529, end: 20220602
  3. ASPIRIN [Concomitant]
     Active Substance: ASPIRIN
     Indication: Anticoagulant therapy
     Dosage: ENTERIC-COATED
     Route: 048
     Dates: start: 20220521, end: 20220522
  4. CEFTRIAXONE [Concomitant]
     Active Substance: CEFTRIAXONE\CEFTRIAXONE SODIUM
     Indication: Inflammation
     Dosage: UNK
     Route: 048
     Dates: start: 20220522, end: 20220522
  5. AMBROXOL HYDROCHLORIDE [Concomitant]
     Active Substance: AMBROXOL HYDROCHLORIDE
     Indication: Productive cough
     Dosage: UNK
     Route: 048
     Dates: start: 20220522, end: 20220522
  6. AMBROXOL HYDROCHLORIDE [Concomitant]
     Active Substance: AMBROXOL HYDROCHLORIDE
     Indication: Productive cough
     Dosage: UNK
     Route: 058
     Dates: start: 20220522, end: 20220522
  7. HERBALS [Concomitant]
     Active Substance: HERBALS
     Indication: Inflammation
     Dosage: UNK
     Route: 042
     Dates: start: 20220522, end: 20220529
  8. THYMALFASIN [Concomitant]
     Active Substance: THYMALFASIN
     Indication: Prophylaxis
     Dosage: UNK
     Route: 058
     Dates: start: 20220522, end: 20220526
  9. ALBUMIN HUMAN [Concomitant]
     Active Substance: ALBUMIN HUMAN
     Indication: Supplementation therapy
     Dosage: UNK
     Route: 042
     Dates: start: 20220522, end: 20220529
  10. CEFOXITIN SODIUM [Concomitant]
     Active Substance: CEFOXITIN SODIUM
     Indication: Anti-infective therapy
     Dosage: UNK
     Route: 042
     Dates: start: 20220522, end: 20220525
  11. AZITHROMYCIN [Concomitant]
     Active Substance: AZITHROMYCIN
     Indication: Anti-infective therapy
     Dosage: UNK
     Route: 042
     Dates: start: 20220522, end: 20220525
  12. MOXIFLOXACIN HYDROCHLORIDE [Concomitant]
     Active Substance: MOXIFLOXACIN HYDROCHLORIDE\MOXIFLOXACIN HYDROCHLORIDE MONOHYDRATE
     Indication: Anti-infective therapy
     Dosage: UNK
     Route: 042
     Dates: start: 20220525, end: 20220529
  13. VITAMIN C [Concomitant]
     Active Substance: ASCORBIC ACID
     Indication: Infusion
     Dosage: UNK
     Route: 042
     Dates: start: 20220526, end: 20220528
  14. FLUCONAZOLE [Concomitant]
     Active Substance: FLUCONAZOLE
     Indication: Antifungal treatment
     Dosage: UNK
     Route: 042
     Dates: start: 20220527, end: 20220529
  15. POTASSIUM CHLORIDE [Concomitant]
     Active Substance: POTASSIUM CHLORIDE
     Indication: Mineral supplementation
     Dosage: NASOGASTRIC
     Dates: start: 20220528, end: 20220529
  16. VITAMINS [Concomitant]
     Active Substance: VITAMINS
     Indication: Vitamin supplementation
     Dosage: UNK
     Route: 042
     Dates: start: 20220529, end: 20220602
  17. PIPERACILLIN SODIUM\TAZOBACTAM SODIUM [Concomitant]
     Active Substance: PIPERACILLIN SODIUM\TAZOBACTAM SODIUM
     Indication: Anti-infective therapy
     Dosage: UNK
     Route: 042
     Dates: start: 20220601, end: 20220605
  18. PIPERACILLIN SODIUM\TAZOBACTAM SODIUM [Concomitant]
     Active Substance: PIPERACILLIN SODIUM\TAZOBACTAM SODIUM
     Dosage: UNK
     Route: 042
     Dates: start: 20220601, end: 20220601
  19. LIVE COMBINED BIFIDOBACTERIUM AND LACTOBACILLUS [Concomitant]
     Indication: Dysbiosis
     Dosage: UNK
     Route: 048
     Dates: start: 20220602, end: 20220605
  20. LIDOCAINE HYDROCHLORIDE [Concomitant]
     Active Substance: LIDOCAINE HYDROCHLORIDE
     Indication: Respiratory therapy
     Dosage: UNK
     Route: 050
     Dates: start: 20220523, end: 20220523
  21. FUROSEMIDE [Concomitant]
     Active Substance: FUROSEMIDE
     Indication: Polyuria
     Dosage: UNK
     Route: 042
     Dates: start: 20220529, end: 20220529
  22. TORSEMIDE [Concomitant]
     Active Substance: TORSEMIDE
     Indication: Polyuria
     Dosage: UNK
     Route: 042
     Dates: start: 20220530, end: 20220530
  23. CALCIUM GLUCONATE [Concomitant]
     Active Substance: CALCIUM GLUCONATE
     Indication: Mineral supplementation
     Dosage: UNK
     Route: 042
     Dates: start: 20220530, end: 20220530
  24. FURAN [Concomitant]
     Indication: Premedication
     Dosage: NOSE DROPS
     Dates: start: 20220531, end: 20220531
  25. ROCURONIUM BROMIDE [Concomitant]
     Active Substance: ROCURONIUM BROMIDE
     Indication: Premedication
     Dosage: UNK
     Dates: start: 20220531, end: 20220531

REACTIONS (1)
  - Overdose [Unknown]
